FAERS Safety Report 6396181-3 (Version None)
Quarter: 2009Q4

REPORT INFORMATION
  Report Type: 
  Country: None (occurrence: None)
  Receive Date: 20091010
  Receipt Date: 20091002
  Transmission Date: 20100525
  Serious: Yes (Other)
  Sender: FDA-Public Use
  Company Number: GB-JNJCH-2009026591

PATIENT
  Age: 46 Year
  Sex: Female

DRUGS (2)
  1. LISTERINE [Suspect]
     Indication: DRUG USE FOR UNKNOWN INDICATION
     Dosage: TEXT:TWICE A DAY
     Route: 048
  2. OTHER EMOLLIENTS AND PROTECTIVES [Suspect]
     Indication: MOUTH ULCERATION
     Dosage: TEXT:UNKNOWN
     Route: 048

REACTIONS (7)
  - ABSCESS ORAL [None]
  - CAUSTIC INJURY [None]
  - DENTAL CARIES [None]
  - MOUTH ULCERATION [None]
  - STOMATITIS NECROTISING [None]
  - TOOTH LOSS [None]
  - TOOTHACHE [None]
